FAERS Safety Report 8177880-X (Version None)
Quarter: 2012Q1

REPORT INFORMATION
  Report Type: 
  Country: None (occurrence: None)
  Receive Date: 20120126
  Receipt Date: 20111010
  Transmission Date: 20120608
  Serious: No
  Sender: FDA-Public Use
  Company Number: PHEH2011US06457

PATIENT
  Sex: Female
  Weight: 52 kg

DRUGS (4)
  1. AFINITOR [Suspect]
     Indication: TUBEROUS SCLEROSIS
     Dosage: 2.5 MG DAILY, ORAL
     Route: 048
     Dates: start: 20110412
  2. AFINITOR [Suspect]
     Indication: ASTROCYTOMA, LOW GRADE
     Dosage: 2.5 MG DAILY, ORAL
     Route: 048
     Dates: start: 20110412
  3. VITAMINS NOS [Concomitant]
  4. LAMICTAL [Concomitant]

REACTIONS (2)
  - DECREASED APPETITE [None]
  - BODY TEMPERATURE DECREASED [None]
